FAERS Safety Report 7588097-1 (Version None)
Quarter: 2011Q3

REPORT INFORMATION
  Report Type: 
  Country: None (occurrence: None)
  Receive Date: 20110705
  Receipt Date: 20110630
  Transmission Date: 20111222
  Serious: Yes (Other)
  Sender: FDA-Public Use
  Company Number: US-PFIZER INC-2011147544

PATIENT
  Sex: Female
  Weight: 70.295 kg

DRUGS (15)
  1. PROMETHAZINE [Concomitant]
     Dosage: 25 MG, UNK
  2. CARDIZEM CD [Concomitant]
     Indication: ARRHYTHMIA
     Dosage: 180 MG, 1X/DAY
  3. PRANDIN [Concomitant]
     Indication: DIABETES MELLITUS
     Dosage: UNK
  4. PROMETHAZINE [Concomitant]
     Dosage: 50 MG, UNK
  5. MORPHINE [Concomitant]
     Indication: MIGRAINE
     Dosage: UNK
  6. SYNTHROID [Concomitant]
     Indication: HYPOTHYROIDISM
     Dosage: UNK
  7. ZOLOFT [Suspect]
     Indication: DEPRESSION
     Dosage: 50 MG, 1X/DAY
     Route: 048
     Dates: start: 20080101
  8. ALDACTONE [Concomitant]
     Indication: FLUID RETENTION
     Dosage: 50 MG, 2X/DAY
  9. XANAX [Concomitant]
     Indication: GENERALISED ANXIETY DISORDER
     Dosage: 0.5 MG, 3X/DAY
  10. PREVACID [Concomitant]
     Dosage: 30 MG, 2X/DAY
  11. DIGOXIN [Concomitant]
     Dosage: 0.25 MG, 1X/DAY
  12. PROPAFENONE [Concomitant]
     Indication: ATRIAL FIBRILLATION
     Dosage: UNK
  13. WARFARIN [Concomitant]
     Dosage: UNK
  14. MONTELUKAST [Concomitant]
     Dosage: UNK
  15. METFORMIN [Concomitant]
     Indication: DIABETES MELLITUS
     Dosage: UNK

REACTIONS (1)
  - BLOOD GLUCOSE INCREASED [None]
